FAERS Safety Report 4583594-5 (Version None)
Quarter: 2005Q1

REPORT INFORMATION
  Report Type: 
  Country: None (occurrence: None)
  Receive Date: 20050211
  Receipt Date: 20041228
  Transmission Date: 20050727
  Serious: Yes (Other)
  Sender: FDA-Public Use
  Company Number: 2005PK00220

PATIENT
  Age: 17 Year
  Sex: Female

DRUGS (5)
  1. SEROQUEL [Suspect]
     Dosage: 800 MG DAILY PO
     Route: 048
  2. FAVISTAN [Suspect]
  3. LORAZEPAM [Concomitant]
  4. PROPRANOLOL [Concomitant]
  5. L-THYROXIN [Concomitant]

REACTIONS (1)
  - LEUKOPENIA [None]
